FAERS Safety Report 9671712 (Version 1)
Quarter: 2013Q4

REPORT INFORMATION
  Report Type: Spontaneous
  Country: US (occurrence: None)
  Receive Date: 20131105
  Receipt Date: 20131105
  Transmission Date: 20140711
  Serious: Yes (Other)
  Sender: FDA-Public Use
  Company Number: None

PATIENT
  Age: 66 Year
  Sex: Male
  Weight: 74.1 kg

DRUGS (8)
  1. VANCOMYCIN [Suspect]
     Indication: INFECTION
     Route: 042
     Dates: start: 20131001, end: 20131008
  2. VANCOMYCIN [Suspect]
     Indication: ANASTOMOTIC LEAK
     Route: 042
     Dates: start: 20131001, end: 20131008
  3. FUROSEMIDE [Concomitant]
  4. MAGNESIUM SULFATE [Concomitant]
  5. ACETAMINOPHEN [Concomitant]
  6. HYDROMORPHONE [Concomitant]
  7. METOPROLOL TARTRATE [Concomitant]
  8. ALTEPLASE [Concomitant]

REACTIONS (2)
  - Nephropathy toxic [None]
  - Blood creatinine increased [None]
